FAERS Safety Report 6388771-9 (Version None)
Quarter: 2009Q4

REPORT INFORMATION
  Report Type: 
  Country: None (occurrence: None)
  Receive Date: 20091005
  Receipt Date: 20090921
  Transmission Date: 20100525
  Serious: Yes (Other)
  Sender: FDA-Public Use
  Company Number: US-PFIZER INC-2009276085

PATIENT
  Sex: Male

DRUGS (1)
  1. XANAX [Suspect]

REACTIONS (5)
  - ASCITES [None]
  - HEPATOTOXICITY [None]
  - INJURY [None]
  - INSOMNIA [None]
  - LIVER DISORDER [None]
